FAERS Safety Report 7242758-2 (Version None)
Quarter: 2011Q1

REPORT INFORMATION
  Report Type: 
  Country: None (occurrence: None)
  Receive Date: 20110114
  Receipt Date: 20110104
  Transmission Date: 20110831
  Serious: Yes (Death)
  Sender: FDA-Public Use
  Company Number: B0692800A

PATIENT
  Age: 23 Year
  Sex: Female

DRUGS (4)
  1. BETAMETHASONE (FORMULATION UNKNOWN) (BETAMETHASONE) (GENERIC) [Suspect]
     Indication: PRENATAL CARE
  2. PARACETAMOL (FORMULATION UNKNOWN) (ACETAMINOPHEN) (GENERIC) [Suspect]
     Dosage: 500 MG / SINGLE DOSE / ORAL
     Route: 048
  3. VERAPAMIL [Suspect]
  4. AUGMENTIN [Suspect]
     Dosage: THREE TIMES PER DAY / INTRAVENOUS
     Route: 042

REACTIONS (8)
  - ESCHERICHIA SEPSIS [None]
  - PULMONARY OEDEMA [None]
  - CIRCULATORY COLLAPSE [None]
  - CAESAREAN SECTION [None]
  - ACUTE RESPIRATORY FAILURE [None]
  - DYSARTHRIA [None]
  - UROSEPSIS [None]
  - DRUG EXPOSURE DURING PREGNANCY [None]
